FAERS Safety Report 21792947 (Version 1)
Quarter: 2022Q4

REPORT INFORMATION
  Report Type: Spontaneous
  Country: IL (occurrence: IL)
  Receive Date: 20221229
  Receipt Date: 20221229
  Transmission Date: 20230112
  Serious: Yes (Other)
  Sender: FDA-Public Use
  Company Number: IL-ALKEM LABORATORIES LIMITED-IL-ALKEM-2022-11697

PATIENT

DRUGS (1)
  1. SIROLIMUS [Suspect]
     Active Substance: SIROLIMUS
     Indication: Klippel-Trenaunay syndrome
     Dosage: 0.6 MILLIGRAM/SQ. METER, BID (TWICE DAILY)
     Route: 048

REACTIONS (3)
  - Hypertriglyceridaemia [Unknown]
  - Toxicity to various agents [Unknown]
  - Therapy non-responder [Unknown]
